FAERS Safety Report 9247377 (Version 3)
Quarter: 2013Q2

REPORT INFORMATION
  Report Type: Spontaneous
  Country: FR (occurrence: FR)
  Receive Date: 20130423
  Receipt Date: 20130429
  Transmission Date: 20140414
  Serious: Yes (Hospitalization, Other)
  Sender: FDA-Public Use
  Company Number: FR-PFIZER INC-2013125052

PATIENT
  Age: 86 Year
  Sex: Male

DRUGS (16)
  1. CORDARONE [Suspect]
     Indication: ATRIAL FIBRILLATION
     Dosage: 200 MG, DAILY
     Route: 048
     Dates: start: 20130208
  2. COUMADINE [Interacting]
     Indication: ATRIAL FIBRILLATION
     Dosage: 1 MG, DAILY
     Route: 048
     Dates: end: 20130213
  3. OMEPRAZOLE [Concomitant]
     Dosage: UNK
  4. SPIRIVA [Concomitant]
     Dosage: UNK
     Dates: start: 20130208
  5. KALEORID [Concomitant]
     Dosage: UNK
     Dates: start: 20130208
  6. SINGULAIR [Concomitant]
     Dosage: UNK
     Dates: start: 20130208
  7. INVANZ [Concomitant]
     Dosage: UNK
     Dates: start: 20130208
  8. LASILIX [Concomitant]
     Dosage: UNK
  9. RAMIPRIL [Concomitant]
     Dosage: UNK
  10. LERCAN [Concomitant]
     Dosage: UNK
  11. VASTEN [Concomitant]
     Dosage: UNK
  12. SILODYX [Concomitant]
     Dosage: UNK
  13. INSULATARD [Concomitant]
     Dosage: UNK
  14. PARACETAMOL [Concomitant]
     Dosage: UNK
     Dates: start: 20130208
  15. BRICANYL [Concomitant]
     Dosage: UNK
     Dates: start: 20130208
  16. ATROVENT [Concomitant]
     Dosage: UNK
     Dates: start: 20130208

REACTIONS (4)
  - Drug interaction [Unknown]
  - Haematoma [Recovering/Resolving]
  - Fall [Unknown]
  - Hypotension [Unknown]
